FAERS Safety Report 11453963 (Version 1)
Quarter: 2015Q3

REPORT INFORMATION
  Report Type: Report from Study
  Country: BR (occurrence: BR)
  Receive Date: 20150903
  Receipt Date: 20150903
  Transmission Date: 20151125
  Serious: Yes (Death, Other)
  Sender: FDA-Public Use
  Company Number: PHHY2015BR105093

PATIENT
  Sex: Male
  Weight: 80 kg

DRUGS (1)
  1. ONBREZ BREEZHALER [Suspect]
     Active Substance: INDACATEROL
     Indication: EMPHYSEMA
     Dosage: 300 MG, QD
     Route: 065
     Dates: start: 201411, end: 20150812

REACTIONS (7)
  - Pneumonia [Fatal]
  - Throat cancer [Unknown]
  - Septic shock [Fatal]
  - Nosocomial infection [Unknown]
  - Lung disorder [Unknown]
  - Weight decreased [Unknown]
  - Emphysema [Fatal]
